FAERS Safety Report 4497566-2 (Version None)
Quarter: 2004Q4

REPORT INFORMATION
  Report Type: 
  Country: None (occurrence: None)
  Receive Date: 20041108
  Receipt Date: 20041025
  Transmission Date: 20050328
  Serious: Yes (Hospitalization)
  Sender: FDA-Public Use
  Company Number: US-JNJFOC-20040403390

PATIENT
  Sex: Male
  Weight: 68.04 kg

DRUGS (23)
  1. DURAGESIC [Suspect]
     Route: 062
  2. DURAGESIC [Suspect]
     Route: 062
  3. DURAGESIC [Suspect]
     Route: 062
  4. VALIUM [Suspect]
     Indication: ANXIETY
     Route: 049
     Dates: start: 20040101
  5. PERCOCET [Suspect]
     Route: 049
     Dates: start: 20040101
  6. PERCOCET [Suspect]
     Indication: PAIN
     Route: 049
     Dates: start: 20040101
  7. ENDOCET [Concomitant]
  8. ENDOCET [Concomitant]
     Dosage: 10-325 MG.
  9. LORAZEPAM [Concomitant]
  10. PROZAC [Concomitant]
  11. NEURONTIN [Concomitant]
  12. AMBIEN [Concomitant]
  13. AMITRIPTYLINE HCL [Concomitant]
  14. ZYPREXA [Concomitant]
  15. AVELOX [Concomitant]
     Dosage: 400 MG ABC
  16. ANDEHIST DM NR [Concomitant]
  17. BIAXIN [Concomitant]
  18. WELLBUTRIN XL [Concomitant]
  19. NABUMETONE [Concomitant]
  20. AMOXICILLIN AND CLAVULANATE POTASSIUM [Concomitant]
  21. AMOXICILLIN AND CLAVULANATE POTASSIUM [Concomitant]
  22. PRILOSEC OTC [Concomitant]
  23. DIPHENHYDRAMINE [Concomitant]

REACTIONS (43)
  - ARTHRALGIA [None]
  - ASTHENIA [None]
  - ATELECTASIS [None]
  - BLOOD LACTATE DEHYDROGENASE INCREASED [None]
  - BLOOD PRESSURE INCREASED [None]
  - BRONCHITIS [None]
  - BRONCHITIS ACUTE [None]
  - CHEST PAIN [None]
  - CHEST WALL PAIN [None]
  - CONFUSIONAL STATE [None]
  - CONTUSION [None]
  - COUGH [None]
  - DERMATITIS CONTACT [None]
  - DIARRHOEA [None]
  - DYSARTHRIA [None]
  - DYSURIA [None]
  - ECCHYMOSIS [None]
  - FALL [None]
  - GAIT DISTURBANCE [None]
  - GASTRITIS [None]
  - GASTROOESOPHAGEAL REFLUX DISEASE [None]
  - HAEMOTHORAX [None]
  - HEADACHE [None]
  - HEART RATE INCREASED [None]
  - HIATUS HERNIA [None]
  - HYPOGONADISM [None]
  - HYPOXIA [None]
  - INSOMNIA [None]
  - INTERVERTEBRAL DISC DEGENERATION [None]
  - LIVER FUNCTION TEST ABNORMAL [None]
  - LOSS OF CONSCIOUSNESS [None]
  - MELAENA [None]
  - NAUSEA [None]
  - OESOPHAGITIS [None]
  - PANIC ATTACK [None]
  - PHARMACEUTICAL PRODUCT COMPLAINT [None]
  - PLEURAL EFFUSION [None]
  - PROTEIN TOTAL INCREASED [None]
  - RECTAL POLYP [None]
  - RIB FRACTURE [None]
  - SPONDYLOSIS [None]
  - TERTIARY SYPHILIS [None]
  - TOOTHACHE [None]
